FAERS Safety Report 13954357 (Version 1)
Quarter: 2017Q3

REPORT INFORMATION
  Report Type: Spontaneous
  Country: US (occurrence: US)
  Receive Date: 20170909
  Receipt Date: 20170909
  Transmission Date: 20171128
  Serious: Yes (Hospitalization, Disabling, Other)
  Sender: FDA-Public Use
  Company Number: None

PATIENT
  Age: 44 Year
  Sex: Female
  Weight: 96.3 kg

DRUGS (5)
  1. MEDICINAL MARIJUANA [Concomitant]
  2. ADDERALL [Concomitant]
     Active Substance: AMPHETAMINE ASPARTATE\AMPHETAMINE SULFATE\DEXTROAMPHETAMINE SACCHARATE\DEXTROAMPHETAMINE SULFATE
  3. PROPANOLOL [Suspect]
     Active Substance: PROPRANOLOL HYDROCHLORIDE
     Indication: MIGRAINE
     Route: 048
     Dates: start: 20170820, end: 20170909
  4. ALBUTEROL INHALER [Concomitant]
     Active Substance: ALBUTEROL
  5. LITHIUM. [Concomitant]
     Active Substance: LITHIUM

REACTIONS (10)
  - Cough [None]
  - Influenza [None]
  - Headache [None]
  - Malaise [None]
  - Vomiting [None]
  - Nausea [None]
  - Crying [None]
  - Product quality issue [None]
  - Asthenia [None]
  - Sneezing [None]

NARRATIVE: CASE EVENT DATE: 20170907
